FAERS Safety Report 6432282-9 (Version None)
Quarter: 2009Q4

REPORT INFORMATION
  Report Type: 
  Country: None (occurrence: None)
  Receive Date: 20091109
  Receipt Date: 20091029
  Transmission Date: 20100525
  Serious: Yes (Other)
  Sender: FDA-Public Use
  Company Number: PHHY2009CA47108

PATIENT
  Sex: Female

DRUGS (4)
  1. EXJADE [Suspect]
     Indication: MYELODYSPLASTIC SYNDROME
     Dosage: 1250 MG, UNK
     Route: 048
     Dates: start: 20091028
  2. BISOPROLOL [Concomitant]
     Indication: BLOOD PRESSURE
     Dosage: 5 MG 1/4 TABLET QD
     Route: 048
  3. ATACAND [Concomitant]
     Indication: BLOOD PRESSURE
     Dosage: 4 MG 1 AND 1/2 TABLET QD
     Route: 048
  4. WARFARIN SODIUM [Concomitant]
     Dosage: 3 MG 1 1/2 TABLET QD ON MONDAY, WEDNESDAY AND FRIDAY AND 1 TABLET QD REST OF DAYS
     Route: 048

REACTIONS (2)
  - DIZZINESS [None]
  - HYPOTENSION [None]
